FAERS Safety Report 7418772-0 (Version None)
Quarter: 2011Q2

REPORT INFORMATION
  Report Type: 
  Country: None (occurrence: None)
  Receive Date: 20110415
  Receipt Date: 20110407
  Transmission Date: 20111010
  Serious: Yes (Hospitalization)
  Sender: FDA-Public Use
  Company Number: DE-ABBOTT-09P-062-0564401-00

PATIENT
  Sex: Female
  Weight: 69 kg

DRUGS (4)
  1. MESALAZINE [Concomitant]
     Indication: CROHN'S DISEASE
     Dates: start: 20031201
  2. BUDESONIDE [Concomitant]
     Indication: CROHN'S DISEASE
     Dates: start: 20071101
  3. IRON [Concomitant]
     Indication: IRON DEFICIENCY
     Dates: start: 20080401
  4. HUMIRA [Suspect]
     Indication: CROHN'S DISEASE
     Route: 058
     Dates: start: 20080509, end: 20080523

REACTIONS (6)
  - ILEAL FISTULA [None]
  - RETROPERITONEAL ABSCESS [None]
  - RENAL FAILURE ACUTE [None]
  - DEVICE RELATED INFECTION [None]
  - ANAL FISTULA [None]
  - PERITONITIS [None]
